FAERS Safety Report 5502978-1 (Version None)
Quarter: 2007Q4

REPORT INFORMATION
  Report Type: 
  Country: None (occurrence: None)
  Receive Date: 20071029
  Receipt Date: 20071029
  Transmission Date: 20080405
  Serious: Yes (Hospitalization)
  Sender: FDA-Public Use
  Company Number: None

PATIENT
  Sex: Female
  Weight: 90.7194 kg

DRUGS (2)
  1. ZYVOX [Suspect]
     Indication: ILL-DEFINED DISORDER
     Dosage: 600 MG Q12HRS IV
     Route: 042
     Dates: start: 20070926, end: 20071026
  2. CIPROFLOXACIN [Suspect]
     Dosage: 400 MG Q 12 HRS IV
     Route: 042
     Dates: start: 20070926, end: 20071026

REACTIONS (6)
  - DEPRESSED LEVEL OF CONSCIOUSNESS [None]
  - LABORATORY TEST ABNORMAL [None]
  - LETHARGY [None]
  - RENAL IMPAIRMENT [None]
  - URINE ANALYSIS ABNORMAL [None]
  - URINE OUTPUT DECREASED [None]
